FAERS Safety Report 15762716 (Version 1)
Quarter: 2018Q4

REPORT INFORMATION
  Report Type: Report from Study
  Country: GB (occurrence: GB)
  Receive Date: 20181226
  Receipt Date: 20181226
  Transmission Date: 20190205
  Serious: Yes (Other)
  Sender: FDA-Public Use
  Company Number: GB-SHIRE-GB201849352

PATIENT

DRUGS (2)
  1. MORPHINE [Concomitant]
     Active Substance: MORPHINE
     Indication: PRODUCT USED FOR UNKNOWN INDICATION
  2. CUVITRU [Suspect]
     Active Substance: HUMAN IMMUNOGLOBULIN G
     Indication: PRODUCT USED FOR UNKNOWN INDICATION
     Dosage: 9 G, 1X/WEEK
     Route: 058
     Dates: start: 20180608

REACTIONS (11)
  - Infusion site pain [Unknown]
  - Angina pectoris [Unknown]
  - Cardiac discomfort [Unknown]
  - Discomfort [Unknown]
  - Vomiting [Unknown]
  - Infusion site swelling [Unknown]
  - Throat tightness [Unknown]
  - Hyperhidrosis [Unknown]
  - Infusion site haemorrhage [Unknown]
  - Chest discomfort [Unknown]
  - Hypersensitivity [Unknown]
